FAERS Safety Report 4663925-8 (Version None)
Quarter: 2005Q2

REPORT INFORMATION
  Report Type: 
  Country: None (occurrence: None)
  Receive Date: 20050511
  Receipt Date: 20050209
  Transmission Date: 20051028
  Serious: Yes (Other)
  Sender: FDA-Public Use
  Company Number: 389744

PATIENT
  Age: 49 Year
  Sex: Male

DRUGS (3)
  1. PEGASYS [Suspect]
     Indication: HEPATITIS C
     Dosage: 180 MCG 1 PER WEEK OTHER
     Route: 050
     Dates: start: 20040924, end: 20050318
  2. COPEGUS [Suspect]
     Indication: HEPATITIS C
     Dosage: 4 DOSE FORM DAILY ORAL
     Route: 048
     Dates: start: 20040924, end: 20050318
  3. ACETAMINOPHEN [Concomitant]

REACTIONS (7)
  - CARDIAC VALVE DISEASE [None]
  - CHEST DISCOMFORT [None]
  - DYSPNOEA [None]
  - HEART VALVE INSUFFICIENCY [None]
  - NEUTROPHIL COUNT DECREASED [None]
  - RASH [None]
  - WHITE BLOOD CELL COUNT DECREASED [None]
